FAERS Safety Report 5250006-8 (Version None)
Quarter: 2007Q1

REPORT INFORMATION
  Report Type: 
  Country: None (occurrence: None)
  Receive Date: 20070228
  Receipt Date: 20060207
  Transmission Date: 20070707
  Serious: No
  Sender: FDA-Public Use
  Company Number: 2006S1000601

PATIENT
  Age: 40 Year
  Sex: Male

DRUGS (3)
  1. LAMICTAL [Suspect]
     Indication: EPILEPSY
     Dosage: 100MG THREE TIMES PER DAY
     Route: 048
  2. DEPAKOTE [Concomitant]
     Dosage: 150MG TWICE PER DAY
  3. DILANTIN [Concomitant]
     Dosage: 300MG PER DAY

REACTIONS (1)
  - TINNITUS [None]
